FAERS Safety Report 23165491 (Version 2)
Quarter: 2023Q4

REPORT INFORMATION
  Report Type: Spontaneous
  Country: DE (occurrence: DE)
  Receive Date: 20231109
  Receipt Date: 20231227
  Transmission Date: 20240110
  Serious: Yes (Hospitalization, Other)
  Sender: FDA-Public Use
  Company Number: DE-002147023-NVSC2023DE237380

PATIENT
  Sex: Male
  Weight: 100 kg

DRUGS (4)
  1. TASIGNA [Suspect]
     Active Substance: NILOTINIB
     Indication: Chronic myeloid leukaemia
     Dosage: 300 MG, BID
     Route: 048
     Dates: start: 20230930, end: 20231025
  2. SCEMBLIX [Suspect]
     Active Substance: ASCIMINIB HYDROCHLORIDE
     Indication: Chronic myeloid leukaemia
     Dosage: UNK
     Route: 048
     Dates: start: 20231027
  3. SCEMBLIX [Suspect]
     Active Substance: ASCIMINIB HYDROCHLORIDE
     Dosage: UNK, BID
     Route: 048
     Dates: start: 20231028, end: 20231103
  4. DASATINIB [Suspect]
     Active Substance: DASATINIB
     Indication: Chronic myeloid leukaemia
     Dosage: UNK, QD
     Route: 048
     Dates: start: 20230829, end: 20230929

REACTIONS (3)
  - Vision blurred [Not Recovered/Not Resolved]
  - Papilloedema [Recovering/Resolving]
  - Renal colic [Recovered/Resolved]

NARRATIVE: CASE EVENT DATE: 20231002
